FAERS Safety Report 17739476 (Version 1)
Quarter: 2020Q2

REPORT INFORMATION
  Report Type: Spontaneous
  Country: US (occurrence: US)
  Receive Date: 20200501
  Receipt Date: 20200501
  Transmission Date: 20200714
  Serious: Yes (Other)
  Sender: FDA-Public Use
  Company Number: None

PATIENT
  Age: 53 Year
  Sex: Male

DRUGS (1)
  1. LENVIMA [Suspect]
     Active Substance: LENVATINIB
     Indication: HEPATOCELLULAR CARCINOMA

REACTIONS (6)
  - Abdominal discomfort [None]
  - Pallor [None]
  - Arthralgia [None]
  - Pyrexia [None]
  - Gout [None]
  - Abdominal distension [None]

NARRATIVE: CASE EVENT DATE: 20200501
